FAERS Safety Report 8844128 (Version 1)
Quarter: 2012Q4

REPORT INFORMATION
  Report Type: 
  Country: US (occurrence: US)
  Receive Date: 20121016
  Receipt Date: 20121016
  Transmission Date: 20130627
  Serious: Yes (Hospitalization, Other)
  Sender: FDA-Public Use
  Company Number: US-PFIZER INC-2012253137

PATIENT
  Age: 56 Year
  Sex: Male
  Weight: 83.9 kg

DRUGS (3)
  1. VIAGRA [Suspect]
     Indication: ERECTILE DYSFUNCTION
     Dosage: 50 mg, as needed
     Dates: start: 2009
  2. CIALIS [Suspect]
     Indication: ERECTILE DYSFUNCTION
     Dosage: UNK
  3. CRESTOR [Concomitant]
     Indication: HYPERTENSION
     Dosage: UNK

REACTIONS (5)
  - Back disorder [Unknown]
  - Arthropathy [Unknown]
  - Neuropathy peripheral [Unknown]
  - Weight decreased [Unknown]
  - Urinary incontinence [Unknown]
